FAERS Safety Report 14742370 (Version 1)
Quarter: 2018Q2

REPORT INFORMATION
  Report Type: Spontaneous
  Country: US (occurrence: US)
  Receive Date: 20180410
  Receipt Date: 20180410
  Transmission Date: 20180711
  Serious: Yes (Other)
  Sender: FDA-Public Use
  Company Number: US-NOVOPROD-593859

PATIENT
  Age: 62 Year
  Sex: Male
  Weight: 92.97 kg

DRUGS (6)
  1. TRESIBA [Suspect]
     Active Substance: INSULIN DEGLUDEC
     Dosage: 20 U, QD
     Route: 058
     Dates: start: 201803, end: 201803
  2. TRESIBA [Suspect]
     Active Substance: INSULIN DEGLUDEC
     Dosage: 16 U, QD
     Route: 058
     Dates: start: 2018
  3. TRESIBA [Suspect]
     Active Substance: INSULIN DEGLUDEC
     Dosage: 24 U, QD
     Route: 058
     Dates: start: 2018, end: 2018
  4. TRESIBA [Suspect]
     Active Substance: INSULIN DEGLUDEC
     Indication: TYPE 2 DIABETES MELLITUS
     Dosage: 16 U, QD
     Route: 058
     Dates: start: 201803, end: 201803
  5. TRESIBA [Suspect]
     Active Substance: INSULIN DEGLUDEC
     Dosage: 18 U, QD
     Route: 058
     Dates: start: 201803, end: 201803
  6. TRESIBA [Suspect]
     Active Substance: INSULIN DEGLUDEC
     Dosage: 22 U, QD
     Route: 058
     Dates: start: 2018, end: 2018

REACTIONS (3)
  - Eye injury [Recovering/Resolving]
  - Blood glucose increased [Not Recovered/Not Resolved]
  - Loss of consciousness [Recovered/Resolved]

NARRATIVE: CASE EVENT DATE: 2018
